FAERS Safety Report 24098470 (Version 1)
Quarter: 2024Q3

REPORT INFORMATION
  Report Type: Spontaneous
  Country: PL (occurrence: None)
  Receive Date: 20240716
  Receipt Date: 20240716
  Transmission Date: 20241017
  Serious: Yes (Other)
  Sender: ASTRAZENECA
  Company Number: 2024A160308

PATIENT
  Sex: Female
  Weight: 62 kg

DRUGS (1)
  1. FASENRA [Suspect]
     Active Substance: BENRALIZUMAB
     Indication: Product used for unknown indication
     Dosage: 30.0MG UNKNOWN
     Route: 058
     Dates: start: 20200902

REACTIONS (1)
  - Breast cancer [Unknown]
